FAERS Safety Report 7183694-X (Version None)
Quarter: 2010Q4

REPORT INFORMATION
  Report Type: 
  Country: None (occurrence: None)
  Receive Date: 20101220
  Receipt Date: 20101220
  Transmission Date: 20110411
  Serious: Yes (Hospitalization)
  Sender: FDA-Public Use
  Company Number: None

PATIENT
  Age: 61 Year
  Sex: Female
  Weight: 66.2 kg

DRUGS (23)
  1. LOVENOX [Suspect]
     Indication: PROPHYLAXIS
     Dosage: 30MG DAILY SQ CHRONIC
     Route: 058
  2. TYLENOL W/ CODEINE [Concomitant]
  3. VALIUM [Concomitant]
  4. POTASSIUM CHLORIDE [Concomitant]
  5. PROTONIX [Concomitant]
  6. ALBUTEROL [Concomitant]
  7. RISPERDAL [Concomitant]
  8. DIAZEPAM [Concomitant]
  9. XOPENEX [Concomitant]
  10. XOPENEX [Concomitant]
  11. ATROVENT [Concomitant]
  12. RAMIPRL [Concomitant]
  13. SETRALINA [Concomitant]
  14. TRAZODONE [Concomitant]
  15. VITC [Concomitant]
  16. CARDIA XT [Concomitant]
  17. ANUSOL HC [Concomitant]
  18. ASA [Concomitant]
  19. VIT B12 [Concomitant]
  20. HALDOL [Concomitant]
  21. FERROUS SULFATE [Concomitant]
  22. FOLIC ACID [Concomitant]
  23. PLAVIX [Concomitant]

REACTIONS (4)
  - ANAEMIA [None]
  - DIARRHOEA [None]
  - DUODENAL PERFORATION [None]
  - OCCULT BLOOD POSITIVE [None]
